FAERS Safety Report 21409741 (Version 8)
Quarter: 2022Q4

REPORT INFORMATION
  Report Type: Report from Study
  Country: US (occurrence: US)
  Receive Date: 20221005
  Receipt Date: 20221214
  Transmission Date: 20230113
  Serious: Yes (Death, Other)
  Sender: FDA-Public Use
  Company Number: US-BEH-2022150082

PATIENT
  Age: 66 Year
  Sex: Female

DRUGS (34)
  1. BERINERT [Suspect]
     Active Substance: HUMAN C1-ESTERASE INHIBITOR
     Indication: Hereditary angioedema
     Dosage: 2000 INTERNATIONAL UNIT, BIW
     Route: 058
     Dates: start: 20220912, end: 202211
  2. BERINERT [Suspect]
     Active Substance: HUMAN C1-ESTERASE INHIBITOR
     Indication: Prophylaxis
     Dosage: UNK
     Route: 065
     Dates: start: 20220919
  3. BERINERT [Suspect]
     Active Substance: HUMAN C1-ESTERASE INHIBITOR
     Indication: Hereditary angioedema
     Dosage: UNK
     Route: 065
     Dates: start: 20220927
  4. BERINERT [Suspect]
     Active Substance: HUMAN C1-ESTERASE INHIBITOR
     Dosage: 2000 INTERNATIONAL UNIT, BIW
     Route: 058
     Dates: start: 20220901
  5. BERINERT [Suspect]
     Active Substance: HUMAN C1-ESTERASE INHIBITOR
     Dosage: 2000 INTERNATIONAL UNIT, BIW
     Route: 058
     Dates: start: 20220902
  6. BERINERT [Suspect]
     Active Substance: HUMAN C1-ESTERASE INHIBITOR
     Dosage: UNK
     Route: 058
     Dates: start: 20221101
  7. BERINERT [Suspect]
     Active Substance: HUMAN C1-ESTERASE INHIBITOR
     Indication: Hereditary angioedema
     Dosage: 3000 INTERNATIONAL UNIT
     Route: 058
     Dates: start: 20220912
  8. BERINERT [Suspect]
     Active Substance: HUMAN C1-ESTERASE INHIBITOR
     Indication: Prophylaxis
     Dosage: UNK INTERNATIONAL UNIT
     Route: 065
     Dates: start: 20220919
  9. BERINERT [Suspect]
     Active Substance: HUMAN C1-ESTERASE INHIBITOR
     Indication: Hereditary angioedema
     Dosage: UNK INTERNATIONAL UNIT
     Route: 065
     Dates: start: 20220927
  10. BERINERT [Suspect]
     Active Substance: HUMAN C1-ESTERASE INHIBITOR
     Dosage: 3000 INTERNATIONAL UNIT, BIW
     Route: 058
     Dates: start: 20220901
  11. BERINERT [Suspect]
     Active Substance: HUMAN C1-ESTERASE INHIBITOR
     Dosage: 5000 INTERNATIONAL UNIT, BIW
     Route: 065
     Dates: start: 20220901
  12. BERINERT [Suspect]
     Active Substance: HUMAN C1-ESTERASE INHIBITOR
     Dosage: 3000 INTERNATIONAL UNIT, BIW
     Route: 058
     Dates: start: 20220912, end: 202211
  13. BERINERT [Suspect]
     Active Substance: HUMAN C1-ESTERASE INHIBITOR
     Dosage: 3000 INTERNATIONAL UNIT, BIW
     Route: 058
     Dates: start: 20220902
  14. BERINERT [Suspect]
     Active Substance: HUMAN C1-ESTERASE INHIBITOR
     Dosage: 5000 INTERNATIONAL UNIT, BIW
     Route: 058
     Dates: start: 20220912
  15. BERINERT [Suspect]
     Active Substance: HUMAN C1-ESTERASE INHIBITOR
     Dosage: UNK
     Route: 058
     Dates: start: 20221101
  16. XOLAIR [Concomitant]
     Active Substance: OMALIZUMAB
     Indication: Asthma
     Route: 065
  17. XOLAIR [Concomitant]
     Active Substance: OMALIZUMAB
     Indication: Urticaria
  18. HAEGARDA [Suspect]
     Active Substance: HUMAN C1-ESTERASE INHIBITOR
     Indication: Product used for unknown indication
     Route: 065
  19. GABAPENTIN [Concomitant]
     Active Substance: GABAPENTIN
  20. FLUTICASONE [Concomitant]
     Active Substance: FLUTICASONE
  21. OMEPRAZOLE [Concomitant]
     Active Substance: OMEPRAZOLE
  22. PEPCID [Concomitant]
     Active Substance: FAMOTIDINE
  23. CETIRIZINE HCL [Concomitant]
     Active Substance: CETIRIZINE HYDROCHLORIDE
  24. VENTOLIN HFA [Concomitant]
     Active Substance: ALBUTEROL SULFATE
  25. BREO ELLIPTA [Concomitant]
     Active Substance: FLUTICASONE FUROATE\VILANTEROL TRIFENATATE
  26. MONTELUKAST SODIUM [Concomitant]
     Active Substance: MONTELUKAST SODIUM
  27. CYCLOSPORINE [Concomitant]
     Active Substance: CYCLOSPORINE
  28. SPIRIVA [Concomitant]
     Active Substance: TIOTROPIUM BROMIDE MONOHYDRATE
  29. DIPHENHYDRAMINE [Concomitant]
     Active Substance: DIPHENHYDRAMINE
  30. AMLODIPINE BESYLATE [Concomitant]
     Active Substance: AMLODIPINE BESYLATE
  31. ALPRAZOLAM [Concomitant]
     Active Substance: ALPRAZOLAM
  32. ALBUTEROL\IPRATROPIUM [Concomitant]
     Active Substance: ALBUTEROL\IPRATROPIUM
  33. ACETAMINOPHEN\BUTALBITAL [Concomitant]
     Active Substance: ACETAMINOPHEN\BUTALBITAL
  34. EPINEPHRINE [Concomitant]
     Active Substance: EPINEPHRINE

REACTIONS (36)
  - Eye swelling [Unknown]
  - Eye irritation [Unknown]
  - Peripheral swelling [Unknown]
  - No adverse event [Recovered/Resolved]
  - Wrong technique in product usage process [Recovered/Resolved]
  - Device issue [Recovered/Resolved]
  - Product preparation issue [Recovered/Resolved]
  - Diarrhoea [Not Recovered/Not Resolved]
  - Infusion site pain [Recovered/Resolved]
  - Infusion site pain [Recovered/Resolved]
  - Infusion site erythema [Recovered/Resolved]
  - Infusion site vesicles [Unknown]
  - Product preparation error [Recovered/Resolved]
  - Product preparation error [Recovered/Resolved]
  - Product preparation error [Recovered/Resolved]
  - Product preparation error [Unknown]
  - Hereditary angioedema [Recovered/Resolved]
  - Device issue [Unknown]
  - Product preparation issue [Unknown]
  - No adverse event [Unknown]
  - Product dose omission in error [Unknown]
  - Headache [Unknown]
  - Hereditary angioedema [Recovered/Resolved]
  - Diarrhoea [Unknown]
  - Headache [Unknown]
  - Infusion site pain [Recovering/Resolving]
  - No adverse event [Unknown]
  - Product use complaint [Unknown]
  - Infusion site erythema [Recovered/Resolved]
  - Infusion site mass [Recovered/Resolved]
  - Diarrhoea [Not Recovered/Not Resolved]
  - Headache [Not Recovered/Not Resolved]
  - Hereditary angioedema [Recovered/Resolved]
  - No adverse event [Unknown]
  - Liquid product physical issue [Unknown]
  - Death [Fatal]

NARRATIVE: CASE EVENT DATE: 20220901
